FAERS Safety Report 9160861 (Version 1)
Quarter: 2013Q1

REPORT INFORMATION
  Report Type: Spontaneous
  Country: JP (occurrence: None)
  Receive Date: 20130219
  Receipt Date: 20130219
  Transmission Date: 20140127
  Serious: Yes (Hospitalization)
  Sender: FDA-Public Use
  Company Number: FK201300442

PATIENT
  Age: 3 Year
  Sex: Female

DRUGS (4)
  1. DEXAMETHASONE INJECTION (MANUFACTURER UNKNOWN) (DEXAMETHASONE SODIUM PHOSPHATE) (DEXAMETHASONE SODIUM PHOSPHATE) [Suspect]
  2. VINCRISTINE (VINCRISTINE) (UNKNOWN) [Concomitant]
  3. 6-MERCAPTOPURINE (MERCAPTOPURINE) [Concomitant]
  4. METHOTREXATE (METHOTREXATE) [Concomitant]

REACTIONS (2)
  - Cytomegalovirus chorioretinitis [None]
  - Pneumocystis jirovecii pneumonia [None]
